FAERS Safety Report 19689644 (Version 1)
Quarter: 2021Q3

REPORT INFORMATION
  Report Type: Spontaneous
  Country: IN (occurrence: IN)
  Receive Date: 20210812
  Receipt Date: 20210812
  Transmission Date: 20211014
  Serious: Yes (Life-Threatening, Other)
  Sender: FDA-Public Use
  Company Number: IN-STRIDES ARCOLAB LIMITED-2021SP026255

PATIENT
  Age: 42 Year
  Sex: Male

DRUGS (18)
  1. PREDNISOLONE. [Interacting]
     Active Substance: PREDNISOLONE
     Dosage: 50 MG/DAY, TABLET, WEEK 2
     Route: 065
  2. PREDNISOLONE. [Interacting]
     Active Substance: PREDNISOLONE
     Dosage: 30 MG/DAY, TABLET, WEEK 6
     Route: 065
  3. PREDNISOLONE. [Interacting]
     Active Substance: PREDNISOLONE
     Indication: TYPE 2 LEPRA REACTION
     Dosage: 60 MG/DAY, TABLET, WEEK 0
     Route: 065
  4. PREDNISOLONE. [Interacting]
     Active Substance: PREDNISOLONE
     Dosage: 20 MG/DAY, TABLET, WEEK 8
     Route: 065
  5. DEXAMETHASONE. [Interacting]
     Active Substance: DEXAMETHASONE
     Indication: TYPE 2 LEPRA REACTION
  6. THALIDOMIDE [Interacting]
     Active Substance: THALIDOMIDE
     Indication: LEPROMATOUS LEPROSY
     Dosage: 100 MILLIGRAM, THRICE DAILY
     Route: 065
  7. PREDNISOLONE. [Suspect]
     Active Substance: PREDNISOLONE
     Indication: LEPROMATOUS LEPROSY
     Dosage: 40 MG/DAY, TABLET
     Route: 065
  8. PREDNISOLONE. [Interacting]
     Active Substance: PREDNISOLONE
     Dosage: 45 MG/DAY, TABLET, WEEK 3
     Route: 065
  9. PREDNISOLONE. [Interacting]
     Active Substance: PREDNISOLONE
     Dosage: 40 MG/DAY, TABLET, WEEK 4
     Route: 065
  10. PREDNISOLONE. [Interacting]
     Active Substance: PREDNISOLONE
     Dosage: 10 MG/DAY, TABLET, WEEK 10
     Route: 065
  11. THALIDOMIDE [Interacting]
     Active Substance: THALIDOMIDE
     Indication: TYPE 2 LEPRA REACTION
     Dosage: 100 MILLIGRAM, UNK
     Route: 065
  12. THALIDOMIDE [Interacting]
     Active Substance: THALIDOMIDE
     Indication: NEURITIS
  13. PREDNISOLONE. [Interacting]
     Active Substance: PREDNISOLONE
     Indication: NEURITIS
     Dosage: 55 MG/DAY, TABLET, WEEK 1
     Route: 065
  14. PREDNISOLONE. [Interacting]
     Active Substance: PREDNISOLONE
     Dosage: 35 MG/DAY, TABLET, WEEK 5
     Route: 065
  15. PREDNISOLONE. [Interacting]
     Active Substance: PREDNISOLONE
     Dosage: 25 MG/DAY, TABLET, WEEK 7
     Route: 065
  16. PREDNISOLONE. [Interacting]
     Active Substance: PREDNISOLONE
     Dosage: 15 MG/DAY, TABLET, WEEK 9 (TAPERED DOSE)
     Route: 065
  17. DEXAMETHASONE. [Interacting]
     Active Substance: DEXAMETHASONE
     Indication: LEPROMATOUS LEPROSY
     Dosage: 8 MILLIGRAM, (INJECTABLE), UNK
     Route: 065
  18. DEXAMETHASONE. [Interacting]
     Active Substance: DEXAMETHASONE
     Indication: NEURITIS

REACTIONS (4)
  - Therapy partial responder [Unknown]
  - Off label use [Unknown]
  - Deep vein thrombosis [Recovered/Resolved]
  - Drug interaction [Unknown]
